FAERS Safety Report 6058671-2 (Version None)
Quarter: 2009Q1

REPORT INFORMATION
  Report Type: 
  Country: None (occurrence: None)
  Receive Date: 20090130
  Receipt Date: 20090116
  Transmission Date: 20090719
  Serious: No
  Sender: FDA-Public Use
  Company Number: US-ASTRAZENECA-2009UW01379

PATIENT
  Age: 77 Year
  Sex: Female

DRUGS (1)
  1. TOPROL-XL [Suspect]
     Dosage: UNKNOWN
     Route: 048

REACTIONS (3)
  - CONTUSION [None]
  - FALL [None]
  - LIMB INJURY [None]
